FAERS Safety Report 9537055 (Version 2)
Quarter: 2013Q4

REPORT INFORMATION
  Report Type: Spontaneous
  Country: US (occurrence: US)
  Receive Date: 20130919
  Receipt Date: 20131101
  Transmission Date: 20140711
  Serious: No
  Sender: FDA-Public Use
  Company Number: US-PFIZER INC-2013268177

PATIENT
  Age: 39 Year
  Sex: 0

DRUGS (1)
  1. BICILLIN C-R/C-R 900/300 [Suspect]
     Indication: LYME DISEASE
     Dosage: ONCE A WEEK

REACTIONS (3)
  - Nausea [Unknown]
  - Vomiting [Unknown]
  - Malabsorption [Unknown]
